FAERS Safety Report 21382518 (Version 2)
Quarter: 2022Q4

REPORT INFORMATION
  Report Type: Other
  Country: US (occurrence: None)
  Receive Date: 20220927
  Receipt Date: 20221009
  Transmission Date: 20230112
  Serious: Yes (Other)
  Sender: FDA-Public Use
  Company Number: US-ROCHE-2569978

PATIENT
  Sex: Female
  Weight: 63.560 kg

DRUGS (7)
  1. OCREVUS [Suspect]
     Active Substance: OCRELIZUMAB
     Indication: Primary progressive multiple sclerosis
     Route: 042
     Dates: start: 2019
  2. VITAMIN D3 [Concomitant]
     Active Substance: CHOLECALCIFEROL
     Indication: Vitamin D decreased
     Route: 048
     Dates: start: 2016
  3. CRANBERRY [Concomitant]
     Active Substance: CRANBERRY
     Indication: Fungal infection
     Route: 048
  4. METHENAMINE [Concomitant]
     Active Substance: METHENAMINE
     Indication: Fungal infection
     Route: 048
  5. MYRBETRIQ [Concomitant]
     Active Substance: MIRABEGRON
     Indication: Bladder spasm
     Route: 048
  6. CITALOPRAM [Concomitant]
     Active Substance: CITALOPRAM HYDROBROMIDE
     Indication: Depression
     Route: 048
  7. CITALOPRAM [Concomitant]
     Active Substance: CITALOPRAM HYDROBROMIDE
     Route: 048

REACTIONS (9)
  - Urinary tract infection [Not Recovered/Not Resolved]
  - Nausea [Not Recovered/Not Resolved]
  - Urine odour abnormal [Not Recovered/Not Resolved]
  - Muscular weakness [Unknown]
  - Amnesia [Unknown]
  - Nephrolithiasis [Not Recovered/Not Resolved]
  - Calculus bladder [Not Recovered/Not Resolved]
  - Fungal infection [Not Recovered/Not Resolved]
  - Menopause [Not Recovered/Not Resolved]

NARRATIVE: CASE EVENT DATE: 20200101
